FAERS Safety Report 18560290 (Version 2)
Quarter: 2020Q4

REPORT INFORMATION
  Report Type: Spontaneous
  Country: BR (occurrence: BR)
  Receive Date: 20201130
  Receipt Date: 20201215
  Transmission Date: 20210114
  Serious: Yes (Other)
  Sender: FDA-Public Use
  Company Number: NVSC2020BR316304

PATIENT
  Sex: Female
  Weight: 68 kg

DRUGS (5)
  1. TRAVATAN Z [Suspect]
     Active Substance: TRAVOPROST
     Indication: GLAUCOMA
     Dosage: 0.4 MG, QD (1 DROP IN EACH EYE EVEY DAY)(STARTED 5 YERAS AGO)
     Route: 047
  2. BAUSCH + LOMB COMPUTER EYE DROPS [Concomitant]
     Indication: MACULOPATHY
     Dosage: 1 DF, QD (DOESN?T) STARTED APPROXIMATELY 5 YEARS AGO
     Route: 048
  3. ATENOLOL. [Concomitant]
     Active Substance: ATENOLOL
     Indication: HYPERTENSION
     Dosage: 1 DF, QD (STARTED APPROXIMATELY 5 YEARS AGO)
     Route: 048
  4. ATORVASTATINA [Concomitant]
     Active Substance: ATORVASTATIN
     Indication: BLOOD CHOLESTEROL INCREASED
     Dosage: 1 DF, QD (STARTED APPROXIMATELY 5 YEARS AGO)
     Route: 048
  5. EUTHYROX [Concomitant]
     Active Substance: LEVOTHYROXINE SODIUM
     Indication: THYROID MASS
     Dosage: 1 DF, QD (1 TABLET A DAY ON FASTING)
     Route: 048

REACTIONS (10)
  - Eye pain [Unknown]
  - Visual impairment [Not Recovered/Not Resolved]
  - Product packaging issue [Unknown]
  - Application site pain [Not Recovered/Not Resolved]
  - Glaucoma [Unknown]
  - Cataract [Unknown]
  - Fear [Unknown]
  - Pruritus [Not Recovered/Not Resolved]
  - Liquid product physical issue [Unknown]
  - Tinnitus [Not Recovered/Not Resolved]
